FAERS Safety Report 9224254 (Version 3)
Quarter: 2013Q2

REPORT INFORMATION
  Report Type: Spontaneous
  Country: US (occurrence: US)
  Receive Date: 20130411
  Receipt Date: 20130627
  Transmission Date: 20140414
  Serious: No
  Sender: FDA-Public Use
  Company Number: US-009507513-1304USA000637

PATIENT
  Age: 11 Year
  Sex: Male
  Weight: 59.4 kg

DRUGS (2)
  1. NASONEX [Suspect]
     Dosage: 2 DF, QD
     Route: 045
     Dates: start: 201103
  2. ASTELIN (DYPHYLLINE) [Concomitant]

REACTIONS (5)
  - Rhinalgia [Unknown]
  - Nasal discomfort [Unknown]
  - Device difficult to use [Unknown]
  - Nasal discomfort [Recovered/Resolved]
  - Product quality issue [Unknown]
